FAERS Safety Report 18434200 (Version 1)
Quarter: 2020Q4

REPORT INFORMATION
  Report Type: Spontaneous
  Country: CN (occurrence: CN)
  Receive Date: 20201027
  Receipt Date: 20201027
  Transmission Date: 20210114
  Serious: Yes (Hospitalization, Other)
  Sender: FDA-Public Use
  Company Number: CN-ASCEND THERAPEUTICS US, LLC-2093197

PATIENT
  Age: 28 Year
  Sex: Female

DRUGS (11)
  1. ESTROGEL [Suspect]
     Active Substance: ESTRADIOL
     Indication: ENDOMETRIAL HYPOPLASIA
     Route: 065
  2. PROGESTERONE. [Suspect]
     Active Substance: PROGESTERONE
  3. ESTROGEL [Suspect]
     Active Substance: ESTRADIOL
  4. GONAL-F [Suspect]
     Active Substance: FOLLITROPIN
     Route: 065
  5. UROFOLLITROPIN (UROFOLLITROPIN) (INJECTION), UNKNOWN, UNKNOWN, UNKNOWN [Suspect]
     Active Substance: UROFOLLITROPIN
     Route: 065
  6. OESTROGEL (ESTRADIOL) (GEL), UNK [Suspect]
     Active Substance: ESTRADIOL
     Route: 065
  7. CHORIONIC GONADOTROPIN [Suspect]
     Active Substance: CHORIOGONADOTROPIN ALFA
     Route: 065
  8. TRIPTORELIN (TRIPTORELIN), UNKNOWN [Suspect]
     Active Substance: TRIPTORELIN
     Route: 065
  9. DYDROGESTERONE (DYDROGESTERONE) (20 MILLIGRAM), UNKNOWN [Suspect]
     Active Substance: DYDROGESTERONE
     Route: 048
  10. GONAL-F [Suspect]
     Active Substance: FOLLITROPIN
     Route: 065
  11. PROGYNOVA (ESTRADIOL), UNKNOWN [Suspect]
     Active Substance: ESTRADIOL
     Route: 048

REACTIONS (7)
  - Abortion missed [Unknown]
  - Hypoproteinaemia [Unknown]
  - Pyrexia [Unknown]
  - Off label use [None]
  - Disseminated tuberculosis [Recovered/Resolved]
  - Female genital tract tuberculosis [Recovered/Resolved]
  - Anaemia [Unknown]
